FAERS Safety Report 24414263 (Version 3)
Quarter: 2025Q3

REPORT INFORMATION
  Report Type: Report from Study
  Country: US (occurrence: US)
  Receive Date: 20241009
  Receipt Date: 20250809
  Transmission Date: 20251021
  Serious: Yes (Other)
  Sender: ALEXION PHARMACEUTICALS
  Company Number: US-ASTRAZENECA-202409USA010471US

PATIENT
  Sex: Female

DRUGS (1)
  1. TAGRISSO [Suspect]
     Active Substance: OSIMERTINIB
     Indication: Lung carcinoma cell type unspecified stage 0
     Dosage: 40 MILLIGRAM, QD
     Route: 065

REACTIONS (9)
  - Cerebrovascular accident [Unknown]
  - Syncope [Unknown]
  - Arthralgia [Unknown]
  - Musculoskeletal chest pain [Unknown]
  - Hypoaesthesia [Unknown]
  - Chest pain [Unknown]
  - Breast pain [Unknown]
  - Nodule [Unknown]
  - Dyspnoea [Unknown]
